FAERS Safety Report 9107116 (Version 1)
Quarter: 2013Q1

REPORT INFORMATION
  Report Type: Report from Study
  Country: JP (occurrence: JP)
  Receive Date: 20130221
  Receipt Date: 20130221
  Transmission Date: 20140127
  Serious: Yes (Hospitalization, Other)
  Sender: FDA-Public Use
  Company Number: JP-009507513-1208JPN002063

PATIENT
  Age: 66 Year
  Sex: Male
  Weight: 63 kg

DRUGS (18)
  1. PEGINTRON [Suspect]
     Indication: HEPATITIS C
     Dosage: 1.27MCG/KG
     Route: 058
     Dates: start: 20120315, end: 20120315
  2. PEGINTRON [Suspect]
     Dosage: 0.8MCG/KG/WEEK
     Route: 058
     Dates: start: 20120322, end: 20120418
  3. PEGINTRON [Suspect]
     Dosage: 0.95MCG/KG/WEEK
     Route: 058
     Dates: start: 20120419, end: 20120501
  4. PEGINTRON [Suspect]
     Dosage: 1.1MCG/KG/WEEK
     Route: 058
     Dates: start: 20120502, end: 20120509
  5. PEGINTRON [Suspect]
     Dosage: 1.41MCG/KG/WEEK
     Route: 058
     Dates: start: 20120510
  6. PEGINTRON [Suspect]
     Indication: HEPATITIS C
     Dosage: 0.8MCG/KG/WEEK
     Route: 058
     Dates: start: 20120322, end: 20120418
  7. PEGINTRON [Suspect]
     Dosage: 0.95MCG/KG/WEEK
     Route: 058
     Dates: start: 20120419, end: 20120501
  8. PEGINTRON [Suspect]
     Dosage: 1.1MCG/KG/WEEK
     Route: 058
     Dates: start: 20120502, end: 20120509
  9. PEGINTRON [Suspect]
     Dosage: 1.41MCG/KG/WEEK
     Route: 058
     Dates: start: 20120510
  10. REBETOL [Suspect]
     Indication: HEPATITIS C
     Dosage: 800 MG, ONCE
     Route: 048
     Dates: start: 20120315, end: 20120323
  11. REBETOL [Suspect]
     Dosage: 600 MG, ONCE
     Route: 048
     Dates: start: 20120324, end: 20120325
  12. REBETOL [Suspect]
     Dosage: 200 MG, ONCE
     Route: 048
     Dates: start: 20120326
  13. REBETOL [Suspect]
     Indication: HEPATITIS C
     Dosage: 600 MG, ONCE
     Route: 048
     Dates: start: 20120324, end: 20120325
  14. REBETOL [Suspect]
     Dosage: 200 MG, ONCE
     Route: 048
     Dates: start: 20120326
  15. TELAVIC [Suspect]
     Indication: HEPATITIS C
     Route: 048
     Dates: start: 20120315
  16. TELAVIC [Suspect]
     Route: 048
     Dates: start: 20120324, end: 20120516
  17. URSO [Concomitant]
     Indication: HEPATITIS C
     Route: 048
     Dates: start: 20110308, end: 20120314
  18. CALONAL [Concomitant]
     Indication: PROPHYLAXIS
     Route: 048
     Dates: start: 20120315

REACTIONS (2)
  - Toxic skin eruption [Unknown]
  - Erythema multiforme [Unknown]
